FAERS Safety Report 7135854-1 (Version None)
Quarter: 2010Q4

REPORT INFORMATION
  Report Type: 
  Country: None (occurrence: None)
  Receive Date: 20101203
  Receipt Date: 20101123
  Transmission Date: 20110411
  Serious: Yes (Other)
  Sender: FDA-Public Use
  Company Number: US-AMGEN-QUU437088

PATIENT

DRUGS (21)
  1. NPLATE [Suspect]
     Indication: IDIOPATHIC THROMBOCYTOPENIC PURPURA
     Dosage: 113 A?G, QWK
     Route: 058
     Dates: start: 20100210
  2. NPLATE [Suspect]
     Dosage: UNK UNK, QWK
     Route: 058
     Dates: start: 20100217, end: 20100314
  3. NPLATE [Suspect]
     Dosage: UNK UNK, QWK
     Dates: start: 20100310, end: 20100805
  4. NPLATE [Suspect]
     Dosage: UNK
     Dates: start: 20100930
  5. NPLATE [Suspect]
     Dosage: UNK
     Dates: start: 20101007
  6. NPLATE [Suspect]
     Dosage: UNK
     Dates: start: 20101021
  7. NPLATE [Suspect]
     Dosage: UNK
  8. NPLATE [Suspect]
  9. NPLATE [Suspect]
  10. CELEXA [Concomitant]
     Dosage: 20 MG, QD
     Route: 048
  11. ATORVASTATIN CALCIUM [Concomitant]
     Dosage: 40 MG, QD
     Route: 048
  12. GLUCOSAMINE W/CHONDROITIN SULFATES [Concomitant]
     Dosage: UNK UNK, QD
     Route: 048
     Dates: start: 20070101
  13. BENAZEPRIL HYDROCHLORIDE [Concomitant]
     Dosage: 40 MG, QD
     Route: 048
  14. LEVOTHYROXINE SODIUM [Concomitant]
     Dosage: 175 A?G, QD
     Route: 048
  15. ALPRAZOLAM [Concomitant]
     Dosage: .25 MG, PRN
     Route: 048
     Dates: start: 20080101
  16. PREDNISONE [Concomitant]
     Dosage: 100 MG, QD
     Route: 048
     Dates: start: 20100913
  17. MULTI-VITAMINS [Concomitant]
     Dosage: UNK UNK, QD
     Route: 048
  18. LOVAZA [Concomitant]
     Dosage: 2400 MG, QD
     Route: 048
     Dates: start: 20070101
  19. TOCOPHEROL CONCENTRATE CAP [Concomitant]
     Dosage: UNK UNK, QD
     Route: 048
  20. CALCIUM [Concomitant]
  21. CALCIUM [Concomitant]

REACTIONS (3)
  - EPISTAXIS [None]
  - PLATELET COUNT ABNORMAL [None]
  - THERAPEUTIC RESPONSE DECREASED [None]
